FAERS Safety Report 7422563-4 (Version None)
Quarter: 2011Q2

REPORT INFORMATION
  Report Type: 
  Country: None (occurrence: None)
  Receive Date: 20110408
  Receipt Date: 20110325
  Transmission Date: 20111010
  Serious: Yes (Hospitalization)
  Sender: FDA-Public Use
  Company Number: 010284

PATIENT
  Sex: Female

DRUGS (12)
  1. CERTOLIZUMAB PEGOL (CERTOLIZUMAB PEGOL) [Suspect]
     Indication: RHEUMATOID ARTHRITIS
     Dosage: (SUBCUTANEOUS)
     Route: 058
     Dates: start: 20091228, end: 20100421
  2. EZETIMIBE [Concomitant]
  3. KETOPROFEN [Concomitant]
  4. ASPIRIN [Concomitant]
  5. FOLIC ACID [Concomitant]
  6. AMLODIPINE BESYLATE [Concomitant]
  7. BISOPROLOL FUMARATE [Concomitant]
  8. EPINASTINE HYDROCHLORIDE [Concomitant]
  9. MEDROL [Concomitant]
  10. LOXOPROFEN SODIUM [Concomitant]
  11. OLMESARTAN MEDOXOMIL [Concomitant]
  12. METHOTREXATE [Concomitant]

REACTIONS (9)
  - LEUKOENCEPHALOPATHY [None]
  - CONDITION AGGRAVATED [None]
  - VASCULITIS [None]
  - RHEUMATOID ARTHRITIS [None]
  - INFECTION [None]
  - SENSORY DISTURBANCE [None]
  - MENINGITIS NONINFECTIVE [None]
  - MUSCULAR WEAKNESS [None]
  - MENINGITIS VIRAL [None]
